FAERS Safety Report 15467824 (Version 1)
Quarter: 2018Q4

REPORT INFORMATION
  Report Type: Spontaneous
  Country: US (occurrence: US)
  Receive Date: 20181001
  Receipt Date: 20181001
  Transmission Date: 20190204
  Serious: Yes (Death)
  Sender: FDA-Public Use
  Company Number: None

PATIENT
  Age: 51 Year
  Sex: Female

DRUGS (1)
  1. NEULASTA [Suspect]
     Active Substance: PEGFILGRASTIM
     Indication: ACUTE KIDNEY INJURY
     Dosage: 6MG/0.6 ML PFS EVERY 14 DAYS INJECTABLE
     Dates: start: 20180510

REACTIONS (1)
  - Death [None]

NARRATIVE: CASE EVENT DATE: 20180926
